FAERS Safety Report 5148534-9 (Version None)
Quarter: 2006Q4

REPORT INFORMATION
  Report Type: 
  Country: None (occurrence: None)
  Receive Date: 20061107
  Receipt Date: 20061103
  Transmission Date: 20070319
  Serious: Yes (Life-Threatening)
  Sender: FDA-Public Use
  Company Number: E2020-00651-SPO-FR

PATIENT
  Age: 85 Year
  Sex: Female

DRUGS (8)
  1. ARICEPT [Suspect]
     Indication: DEMENTIA
     Dosage: 10 MG, 1 IN 1 D, ORAL
     Route: 048
     Dates: end: 20060919
  2. CIPRALAN [Suspect]
     Indication: DRUG USE FOR UNKNOWN INDICATION
     Dosage: 260 MG, ORAL
     Route: 048
     Dates: end: 20060919
  3. LEVOTHYROXINE SODIUM [Concomitant]
  4. PLAVIX [Concomitant]
  5. FERROUS SULFATE TAB [Concomitant]
  6. SPECIAFOLDINE (FOLIC ACID) [Concomitant]
  7. MIANSERINE [Concomitant]
  8. MICARDIS [Concomitant]

REACTIONS (7)
  - ABDOMINAL PAIN UPPER [None]
  - BRADYCARDIA [None]
  - HYPERHIDROSIS [None]
  - MALAISE [None]
  - PAIN [None]
  - PALLOR [None]
  - SHOCK [None]
